FAERS Safety Report 19718472 (Version 1)
Quarter: 2021Q3

REPORT INFORMATION
  Report Type: Report from Study
  Country: US (occurrence: US)
  Receive Date: 20210819
  Receipt Date: 20210819
  Transmission Date: 20211014
  Serious: Yes (Other)
  Sender: FDA-Public Use
  Company Number: US-BIOGEN-2021BI01040460

PATIENT
  Sex: Female

DRUGS (1)
  1. VUMERITY [Suspect]
     Active Substance: DIROXIMEL FUMARATE
     Indication: MULTIPLE SCLEROSIS
     Route: 048
     Dates: start: 20210423, end: 20210806

REACTIONS (4)
  - Visual impairment [Unknown]
  - Multiple sclerosis [Unknown]
  - Blindness unilateral [Unknown]
  - Migraine [Unknown]

NARRATIVE: CASE EVENT DATE: 2021
